FAERS Safety Report 9498578 (Version 2)
Quarter: 2013Q3

REPORT INFORMATION
  Report Type: Spontaneous
  Country: US (occurrence: US)
  Receive Date: 20130904
  Receipt Date: 20130918
  Transmission Date: 20140515
  Serious: No
  Sender: FDA-Public Use
  Company Number: US-PFIZER INC-2013249962

PATIENT
  Sex: Female

DRUGS (1)
  1. PREMARIN [Suspect]
     Dosage: UNK

REACTIONS (4)
  - Product taste abnormal [Unknown]
  - Feeling abnormal [Unknown]
  - Hot flush [Not Recovered/Not Resolved]
  - Tongue discolouration [Unknown]
